FAERS Safety Report 6171626-2 (Version None)
Quarter: 2009Q2

REPORT INFORMATION
  Report Type: 
  Country: None (occurrence: None)
  Receive Date: 20090429
  Receipt Date: 20090422
  Transmission Date: 20091009
  Serious: Yes (Other)
  Sender: FDA-Public Use
  Company Number: JP-BRISTOL-MYERS SQUIBB COMPANY-14603591

PATIENT
  Age: 71 Year
  Sex: Male

DRUGS (2)
  1. MITOMYCIN [Suspect]
     Indication: METASTASES TO LIVER
     Dosage: FORM-INJ.
     Route: 013
  2. FLUOROURACIL [Suspect]
     Indication: METASTASES TO LIVER
     Dosage: FORM-5-FU INJ 250 KYOWA.
     Route: 013

REACTIONS (3)
  - DISSEMINATED INTRAVASCULAR COAGULATION [None]
  - LIVER ABSCESS [None]
  - SEPSIS [None]
